FAERS Safety Report 8731272 (Version 2)
Quarter: 2012Q4

REPORT INFORMATION
  Report Type: 
  Country: JP (occurrence: JP)
  Receive Date: 20120820
  Receipt Date: 20121029
  Transmission Date: 20130627
  Serious: Yes (Other)
  Sender: FDA-Public Use
  Company Number: JP-AMGEN-JPNSP2012050226

PATIENT
  Age: 60 Year
  Sex: Female
  Weight: 43 kg

DRUGS (8)
  1. ARANESP [Suspect]
     Indication: NEPHROGENIC ANAEMIA
     Dosage: 10 mug, qwk
     Route: 040
     Dates: start: 20110406, end: 20120606
  2. CALTAN [Concomitant]
     Dosage: 1000 mg, bid
     Route: 048
  3. ALFAROL [Concomitant]
     Indication: HYPERPARATHYROIDISM SECONDARY
     Dosage: 0.25 mug, qd
     Route: 048
  4. ALFAROL [Concomitant]
     Route: 048
     Dates: start: 20110708
  5. CRESTOR [Concomitant]
     Indication: DYSLIPIDAEMIA
     Dosage: 2.5 mg, qd
     Route: 048
  6. LASIX [Concomitant]
     Indication: RENAL FAILURE CHRONIC
     Dosage: 80 mg, UNK
     Route: 048
  7. LASIX [Concomitant]
     Dosage: 80 mg, qd
     Route: 048
     Dates: start: 20110207
  8. PRECIPITATED CALCIUM CARBONATE [Concomitant]
     Indication: HYPERPHOSPHATAEMIA
     Dosage: 500 mg, bid
     Route: 048
     Dates: start: 20110411

REACTIONS (1)
  - Hepatic function abnormal [Recovered/Resolved]
